FAERS Safety Report 9701696 (Version 1)
Quarter: 2013Q4

REPORT INFORMATION
  Report Type: Spontaneous
  Country: US (occurrence: US)
  Receive Date: 20131119
  Receipt Date: 20131119
  Transmission Date: 20140711
  Serious: No
  Sender: FDA-Public Use
  Company Number: US-SAVIENT-2013S1000052

PATIENT
  Age: 57 Year
  Sex: Female
  Weight: 51.76 kg

DRUGS (1)
  1. KRYSTEXXA [Suspect]
     Indication: PRODUCT USED FOR UNKNOWN INDICATION
     Dates: start: 20130508, end: 20130508

REACTIONS (1)
  - Gout [Recovered/Resolved]
